FAERS Safety Report 17419023 (Version 4)
Quarter: 2022Q2

REPORT INFORMATION
  Report Type: Spontaneous
  Country: US (occurrence: US)
  Receive Date: 20200214
  Receipt Date: 20220617
  Transmission Date: 20220721
  Serious: Yes (Hospitalization)
  Sender: FDA-Public Use
  Company Number: US-THERATECHNOLOGIES EUROPE LIMITED-2020-THE-IBA-000041

PATIENT

DRUGS (17)
  1. TROGARZO [Suspect]
     Active Substance: IBALIZUMAB-UIYK
     Indication: HIV infection
     Dosage: 2000 MG, SINGLE
     Route: 042
     Dates: start: 20191002, end: 20191002
  2. TROGARZO [Suspect]
     Active Substance: IBALIZUMAB-UIYK
     Dosage: 800 MG, EVERY 2 WEEKS
     Route: 042
  3. MEPRON [Concomitant]
     Active Substance: ATOVAQUONE
     Indication: Product used for unknown indication
  4. ENSURE [Concomitant]
     Active Substance: AMINO ACIDS\DEXTROSE\ELECTROLYTES NOS\SOYBEAN OIL\VITAMINS
     Indication: Cachexia
  5. PERIACTIN [Concomitant]
     Active Substance: CYPROHEPTADINE HYDROCHLORIDE
     Indication: Increased appetite
  6. DIFLUCAN [Concomitant]
     Active Substance: FLUCONAZOLE
     Indication: Product used for unknown indication
     Dosage: 200 MG, QD
  7. FLOMAX [Concomitant]
     Active Substance: TAMSULOSIN HYDROCHLORIDE
     Indication: Product used for unknown indication
  8. PANRETIN [Concomitant]
     Active Substance: ALITRETINOIN
     Indication: Kaposi^s sarcoma
  9. LIPITOR [Concomitant]
     Active Substance: ATORVASTATIN CALCIUM
     Indication: Coronary artery disease
  10. ASPIRIN [Concomitant]
     Active Substance: ASPIRIN
     Indication: Coronary artery disease
  11. TOPROL XL [Concomitant]
     Active Substance: METOPROLOL SUCCINATE
     Indication: Hypertension
  12. PROCARDIA [Concomitant]
     Active Substance: NIFEDIPINE
     Indication: Hypertension
  13. PROVENTIL HFA [SALBUTAMOL] [Concomitant]
     Indication: Cough
  14. LACTULOSE [Concomitant]
     Active Substance: LACTULOSE
     Indication: Constipation
  15. SEROSTIM [Concomitant]
     Active Substance: SOMATROPIN
     Indication: Cachexia
  16. OXYCONTIN [Concomitant]
     Active Substance: OXYCODONE HYDROCHLORIDE
     Indication: Product used for unknown indication
  17. METHADONE [Concomitant]
     Active Substance: METHADONE HYDROCHLORIDE
     Indication: Product used for unknown indication

REACTIONS (4)
  - Oral candidiasis [Recovering/Resolving]
  - Weight decreased [Unknown]
  - Candida infection [Unknown]
  - Product preparation error [Recovering/Resolving]

NARRATIVE: CASE EVENT DATE: 20200127
